FAERS Safety Report 8957681 (Version 1)
Quarter: 2012Q4

REPORT INFORMATION
  Report Type: 
  Country: IL (occurrence: IL)
  Receive Date: 20121211
  Receipt Date: 20121211
  Transmission Date: 20130627
  Serious: Yes (Hospitalization)
  Sender: FDA-Public Use
  Company Number: IL-ELI_LILLY_AND_COMPANY-IL201212002607

PATIENT
  Sex: Male

DRUGS (2)
  1. CYMBALTA [Suspect]
     Indication: DEPRESSION
     Dosage: 180 mg, UNK
  2. CYMBALTA [Suspect]
     Dosage: 60 mg, UNK

REACTIONS (2)
  - Hospitalisation [Unknown]
  - Prescribed overdose [Recovered/Resolved]
